FAERS Safety Report 19195216 (Version 2)
Quarter: 2021Q2

REPORT INFORMATION
  Report Type: Spontaneous
  Country: AU (occurrence: AU)
  Receive Date: 20210429
  Receipt Date: 20210515
  Transmission Date: 20210717
  Serious: Yes (Life-Threatening, Hospitalization, Other)
  Sender: FDA-Public Use
  Company Number: AU-ACCORD-223826

PATIENT
  Age: 35 Year
  Sex: Male
  Weight: 142 kg

DRUGS (5)
  1. METFORMIN [Concomitant]
     Active Substance: METFORMIN HYDROCHLORIDE
     Indication: GLUCOSE TOLERANCE IMPAIRED
     Dosage: NOCTE
  2. CAFFEINE/CAFFEINE CITRATE [Interacting]
     Active Substance: CAFFEINE CITRATE
     Indication: WEIGHT DECREASED
     Dosage: BETWEEN 150 AND 450 MG/DAY, TWO AND SIX 250 ML CANS OF RED BULL PER DAY
  3. ESOMEPRAZOLE/ESOMEPRAZOLE MAGNESIUM/ESOMEPRAZOLE SODIUM [Concomitant]
     Active Substance: ESOMEPRAZOLE
     Indication: GASTROOESOPHAGEAL REFLUX DISEASE
     Dosage: MANE
  4. CLOZAPINE. [Suspect]
     Active Substance: CLOZAPINE
     Indication: SCHIZOPHRENIA
     Dosage: NOCTE
  5. ATORVASTATIN [Concomitant]
     Active Substance: ATORVASTATIN
     Indication: HYPERCHOLESTEROLAEMIA
     Dosage: NOCTE

REACTIONS (9)
  - Tubulointerstitial nephritis [Recovered/Resolved]
  - Alcohol interaction [Unknown]
  - Toxicity to various agents [Unknown]
  - Drug interaction [Unknown]
  - Renal failure [Recovered/Resolved]
  - Drug level increased [Recovering/Resolving]
  - Multiple organ dysfunction syndrome [Recovered/Resolved]
  - Hyperglycaemia [Unknown]
  - Acute respiratory failure [Recovered/Resolved]
